FAERS Safety Report 8980046 (Version 1)
Quarter: 2012Q4

REPORT INFORMATION
  Report Type: 
  Country: DK (occurrence: DK)
  Receive Date: 20121221
  Receipt Date: 20121221
  Transmission Date: 20130627
  Serious: Yes (Other)
  Sender: FDA-Public Use
  Company Number: PHHY2012DK115216

PATIENT
  Sex: Female

DRUGS (4)
  1. ZOMETA [Suspect]
     Indication: MULTIPLE MYELOMA
     Dosage: 4 mg / 100 ml
     Route: 042
     Dates: start: 20070907
  2. ALENDRONATE [Suspect]
     Indication: OSTEOPOROSIS
     Dosage: 70 mg (70 mg every 14 day)
     Route: 048
     Dates: start: 2006
  3. DEXAMETHASON [Concomitant]
     Indication: MULTIPLE MYELOMA
  4. ALKERAN [Concomitant]
     Indication: MULTIPLE MYELOMA

REACTIONS (4)
  - Osteonecrosis of jaw [Recovered/Resolved]
  - Purulent discharge [Recovered/Resolved]
  - Pain in jaw [Recovered/Resolved]
  - Primary sequestrum [Unknown]
